FAERS Safety Report 6370881-3 (Version None)
Quarter: 2009Q3

REPORT INFORMATION
  Report Type: 
  Country: None (occurrence: None)
  Receive Date: 20090918
  Receipt Date: 20090902
  Transmission Date: 20100115
  Serious: Yes (Other)
  Sender: FDA-Public Use
  Company Number: 2009BI017618

PATIENT
  Age: 56 Year
  Sex: Female

DRUGS (13)
  1. ZEVALIN [Suspect]
     Indication: DIFFUSE LARGE B-CELL LYMPHOMA STAGE III
     Dosage: 770 MBQ; 1X; IV
     Route: 042
     Dates: start: 20081104, end: 20081111
  2. ZEVALIN [Suspect]
     Indication: LYMPHOMA
     Dosage: 770 MBQ; 1X; IV
     Route: 042
     Dates: start: 20081104, end: 20081111
  3. RITUXIMAB [Concomitant]
  4. LOXONIN [Concomitant]
  5. POLARAMINE [Concomitant]
  6. FLUDARA [Concomitant]
  7. MITOXANTRONE [Concomitant]
  8. DEXAMETHASONE [Concomitant]
  9. CYCLOPHOSPHAMIDE [Concomitant]
  10. DOXORUBICIN HCL [Concomitant]
  11. VINCRISTINE [Concomitant]
  12. PREDNISOLONE [Concomitant]
  13. FLUDEOXYGLUCOSE (18F) [Concomitant]

REACTIONS (3)
  - BONE MARROW FAILURE [None]
  - DIZZINESS [None]
  - NAUSEA [None]
